FAERS Safety Report 7639766-6 (Version None)
Quarter: 2011Q3

REPORT INFORMATION
  Report Type: 
  Country: None (occurrence: None)
  Receive Date: 20110727
  Receipt Date: 20110718
  Transmission Date: 20111222
  Serious: Yes (Hospitalization)
  Sender: FDA-Public Use
  Company Number: PHHY2011US61666

PATIENT
  Sex: Female

DRUGS (17)
  1. CLARITIN [Concomitant]
     Dosage: 10 MG, DAILY
     Route: 048
  2. SENOKOT [Concomitant]
     Dosage: 1 DF, DAILY
     Route: 048
  3. GILENYA [Suspect]
     Indication: MULTIPLE SCLEROSIS
     Dosage: 0.5 MG, DAILY
     Route: 048
  4. TOVIAZ [Concomitant]
     Dosage: 8 MG, QD
     Route: 048
  5. LUNESTA [Concomitant]
     Dosage: 3 MG, QHS
     Route: 048
  6. ASPIRIN [Concomitant]
     Dosage: 325 MG, DAILY
     Route: 048
  7. HYZAAR [Concomitant]
     Dosage: 1 DF, DAILY
     Route: 048
  8. DIOVAN HCT [Concomitant]
  9. ENOXAPARIN [Concomitant]
  10. KLONOPIN [Concomitant]
     Dosage: 0.5 MG, TID
     Route: 048
  11. L-METHYLFOLATE [Concomitant]
     Dosage: 1 DF, DAILY
     Route: 048
  12. AMBIEN [Concomitant]
  13. FAMPRIDINE [Concomitant]
     Dosage: 5 MG, BID
     Route: 048
  14. BENEFIBER [Concomitant]
     Dosage: TAKE 1 PACKET BY MOUTH TWICE DAILY WITH MEALS
  15. VITAMIN D [Concomitant]
     Dosage: 5000 IU, DAILY
     Route: 048
  16. LEXAPRO [Concomitant]
     Dosage: 30 MG, DAILY
     Route: 048
  17. RILUTEK [Concomitant]

REACTIONS (6)
  - AMYOTROPHIC LATERAL SCLEROSIS [None]
  - MUSCULAR WEAKNESS [None]
  - LYMPHOCYTE COUNT INCREASED [None]
  - IMMUNODEFICIENCY [None]
  - OPTIC NEURITIS [None]
  - BLOOD IMMUNOGLOBULIN G INCREASED [None]
